FAERS Safety Report 11861751 (Version 1)
Quarter: 2015Q4

REPORT INFORMATION
  Report Type: Other
  Country: US (occurrence: US)
  Receive Date: 20151222
  Receipt Date: 20151222
  Transmission Date: 20160305
  Serious: Yes (Hospitalization, Other)
  Sender: FDA-Public Use
  Company Number: US-DEP_13277_2015

PATIENT
  Sex: Male

DRUGS (1)
  1. GRALISE [Suspect]
     Active Substance: GABAPENTIN
     Indication: NEURALGIA
     Dosage: DF

REACTIONS (3)
  - Diabetes mellitus [Unknown]
  - Hospitalisation [Not Recovered/Not Resolved]
  - Off label use [Unknown]
